FAERS Safety Report 6317044-5 (Version None)
Quarter: 2009Q3

REPORT INFORMATION
  Report Type: 
  Country: None (occurrence: None)
  Receive Date: 20090820
  Receipt Date: 20090814
  Transmission Date: 20100115
  Serious: No
  Sender: FDA-Public Use
  Company Number: US-B.I. PHARMACEUTICALS,INC./RIDGEFIELD-2009-BP-09701BP

PATIENT
  Sex: Male

DRUGS (15)
  1. SPIRIVA [Suspect]
     Indication: LUNG DISORDER
     Dosage: 18 MCG
     Route: 055
     Dates: start: 20071001
  2. ADVAIR HFA [Concomitant]
     Indication: LUNG DISORDER
     Route: 055
     Dates: start: 20070101
  3. XANAX [Concomitant]
     Indication: ANXIETY
     Route: 048
     Dates: start: 20070101
  4. HYZAAR [Concomitant]
     Indication: HYPERTENSION
     Route: 048
     Dates: start: 20050101
  5. CADUET [Concomitant]
     Indication: HYPERTENSION
     Route: 048
     Dates: start: 20050101
  6. PLAVIX [Concomitant]
     Indication: CORONARY ARTERY OCCLUSION
     Route: 048
     Dates: start: 20050101
  7. ASPIRIN [Concomitant]
     Indication: CORONARY ARTERY OCCLUSION
     Route: 048
     Dates: start: 20050101
  8. ASPIRIN [Concomitant]
     Indication: PROPHYLAXIS
  9. CORDARONE [Concomitant]
     Indication: CORONARY ARTERY OCCLUSION
     Route: 048
     Dates: start: 20050101
  10. CORDARONE [Concomitant]
     Indication: PROPHYLAXIS
  11. KLOR-CON [Concomitant]
     Indication: BLOOD POTASSIUM DECREASED
     Route: 048
     Dates: start: 20050101
  12. FUROSEMIDE [Concomitant]
     Indication: HYPERTENSION
     Dates: start: 20050101
  13. PROAIR HFA [Concomitant]
     Indication: LUNG DISORDER
     Dates: start: 20070101
  14. CENTRUM SILVER [Concomitant]
     Indication: PROPHYLAXIS
     Dates: start: 20050101
  15. CENTRUM SILVER [Concomitant]
     Indication: VITAMIN SUPPLEMENTATION

REACTIONS (3)
  - HYPOTHYROIDISM [None]
  - PRURITUS [None]
  - RASH [None]
